FAERS Safety Report 14465882 (Version 1)
Quarter: 2018Q1

REPORT INFORMATION
  Report Type: Spontaneous
  Country: JP (occurrence: JP)
  Receive Date: 20180131
  Receipt Date: 20180131
  Transmission Date: 20180509
  Serious: Yes (Other)
  Sender: FDA-Public Use
  Company Number: JP-ORION CORPORATION ORION PHARMA-ENTC2018-0034

PATIENT
  Age: 65 Year
  Sex: Female

DRUGS (4)
  1. ARICEPT [Concomitant]
     Active Substance: DONEPEZIL HYDROCHLORIDE
     Route: 065
  2. STALEVO [Suspect]
     Active Substance: CARBIDOPA\ENTACAPONE\LEVODOPA
     Indication: PARKINSON^S DISEASE
     Dosage: (STALEVO L100: MORNING, NOON, EVENING [BEFORE MEAL] AND AT BEDTIME/STALEVO L50: AT 10AM AND AT 2PM [
     Route: 048
  3. SEROQUEL [Concomitant]
     Active Substance: QUETIAPINE FUMARATE
     Route: 065
  4. COMTAN [Suspect]
     Active Substance: ENTACAPONE
     Indication: PARKINSON^S DISEASE
     Dosage: 1 TABLET
     Route: 048

REACTIONS (6)
  - Dysphagia [Unknown]
  - Fall [Unknown]
  - Somnolence [Unknown]
  - Dyskinesia [Unknown]
  - Wrong technique in product usage process [Unknown]
  - Seizure [Unknown]
